FAERS Safety Report 8059571-9 (Version None)
Quarter: 2012Q1

REPORT INFORMATION
  Report Type: 
  Country: None (occurrence: None)
  Receive Date: 20120120
  Receipt Date: 20120110
  Transmission Date: 20120608
  Serious: Yes (Hospitalization)
  Sender: FDA-Public Use
  Company Number: US-BAYER-2011-070620

PATIENT
  Age: 31 Year
  Sex: Female
  Weight: 134 kg

DRUGS (4)
  1. MULTI-VITAMINS [Concomitant]
     Dosage: UNK UNK, QD
     Route: 048
  2. BENAZEPRIL HYDROCHLORIDE [Concomitant]
     Dosage: 10 MG, QD
     Route: 048
  3. ZOLOFT [Concomitant]
     Indication: DEPRESSION
     Dosage: 75 MG, QD
     Route: 048
  4. YASMIN [Suspect]
     Dosage: UNK
     Dates: start: 20030101

REACTIONS (6)
  - CHOLELITHIASIS [None]
  - FEAR [None]
  - PAIN [None]
  - PANCREATITIS [None]
  - INJURY [None]
  - GASTRIC DISORDER [None]
